FAERS Safety Report 9320549 (Version 1)
Quarter: 2013Q2

REPORT INFORMATION
  Report Type: Report from Study
  Country: VE (occurrence: VE)
  Receive Date: 20130531
  Receipt Date: 20130531
  Transmission Date: 20140414
  Serious: Yes (Other)
  Sender: FDA-Public Use
  Company Number: VE-ROCHE-1230204

PATIENT
  Age: 60 Year
  Sex: Female
  Weight: 86 kg

DRUGS (1)
  1. ACTEMRA [Suspect]
     Indication: RHEUMATOID ARTHRITIS
     Route: 042
     Dates: start: 20121129, end: 20130401

REACTIONS (2)
  - Blood urea increased [Unknown]
  - Blood creatinine increased [Unknown]
